FAERS Safety Report 5754327-1 (Version None)
Quarter: 2008Q2

REPORT INFORMATION
  Report Type: 
  Country: None (occurrence: None)
  Receive Date: 20080530
  Receipt Date: 20080117
  Transmission Date: 20081010
  Serious: No
  Sender: FDA-Public Use
  Company Number: US-ABBOTT-08P-163-0434160-00

PATIENT
  Sex: Male
  Weight: 56.75 kg

DRUGS (2)
  1. GENGRAF [Suspect]
     Indication: RENAL TRANSPLANT
     Dosage: 07-JAN-2008 NEW BOTTLE LOT# 56763AF21 EXP. NOV-2009
     Route: 048
     Dates: start: 19980201
  2. GENGRAF 25MG [Suspect]
     Indication: RENAL TRANSPLANT
     Dosage: 07 JAN 2007 NEW BOTTLE, LOT#56775AF21, EXP. DATE NOV-2009
     Route: 048
     Dates: start: 19980201

REACTIONS (1)
  - BLOOD TEST ABNORMAL [None]
